FAERS Safety Report 10103756 (Version 1)
Quarter: 2014Q2

REPORT INFORMATION
  Report Type: Spontaneous
  Country: DE (occurrence: DE)
  Receive Date: 20140424
  Receipt Date: 20140424
  Transmission Date: 20141212
  Serious: Yes (Other)
  Sender: FDA-Public Use
  Company Number: DE-TEVA-476372GER

PATIENT
  Age: 79 Year
  Sex: Male

DRUGS (2)
  1. BICALUTAMID [Suspect]
     Indication: PROSTATE CANCER
     Dosage: 50 MILLIGRAM DAILY;
     Route: 048
     Dates: start: 2014, end: 2014
  2. BICALUTAMID [Suspect]
     Dosage: 150 MILLIGRAM DAILY;
     Route: 048
     Dates: start: 2014, end: 2014

REACTIONS (5)
  - Pneumonia [Recovered/Resolved]
  - Phimosis [Unknown]
  - Productive cough [Recovered/Resolved]
  - Dysphonia [Recovered/Resolved]
  - Bladder discomfort [Unknown]
